FAERS Safety Report 8829346 (Version 1)
Quarter: 2012Q4

REPORT INFORMATION
  Report Type: Report from Study
  Country: BR (occurrence: BR)
  Receive Date: 20121008
  Receipt Date: 20121008
  Transmission Date: 20130627
  Serious: Yes (Death)
  Sender: FDA-Public Use
  Company Number: BR-ROCHE-1141842

PATIENT
  Sex: Female
  Weight: 41 kg

DRUGS (5)
  1. MABTHERA [Suspect]
     Indication: PRODUCT USED FOR UNKNOWN INDICATION
     Route: 065
     Dates: start: 20090301, end: 20120301
  2. RIVOTRIL [Concomitant]
  3. CITALOPRAM [Concomitant]
  4. PREDNISOLONE [Concomitant]
  5. REUQUINOL [Concomitant]

REACTIONS (1)
  - Cardiac disorder [Fatal]
